FAERS Safety Report 17456604 (Version 3)
Quarter: 2020Q2

REPORT INFORMATION
  Report Type: Spontaneous
  Country: US (occurrence: US)
  Receive Date: 20200225
  Receipt Date: 20200429
  Transmission Date: 20200713
  Serious: No
  Sender: FDA-Public Use
  Company Number: US-PFIZER INC-2020082627

PATIENT
  Age: 52 Year
  Sex: Female

DRUGS (1)
  1. XELJANZ XR [Suspect]
     Active Substance: TOFACITINIB CITRATE
     Indication: RHEUMATOID ARTHRITIS
     Dosage: 11 MG, UNK [TYPICALLY TAKES IT IN THE MORNING AS PART OF HER ROUTINE]

REACTIONS (3)
  - Memory impairment [Unknown]
  - Product dose omission [Unknown]
  - Malaise [Unknown]
